FAERS Safety Report 4837595-X (Version None)
Quarter: 2005Q4

REPORT INFORMATION
  Report Type: 
  Country: None (occurrence: None)
  Receive Date: 20051122
  Receipt Date: 20051104
  Transmission Date: 20060501
  Serious: Yes (Hospitalization)
  Sender: FDA-Public Use
  Company Number: 219248

PATIENT
  Age: 40 Year
  Sex: Male

DRUGS (6)
  1. MABTHERA (RITUXIMAB) CONC FOR SOLUTION FOR INFUSION [Suspect]
     Indication: IDIOPATHIC THROMBOCYTOPENIC PURPURA
     Dosage: 800 MG, 1/WEEK, INTRAVENOUS
     Route: 042
     Dates: start: 20050701, end: 20050721
  2. TAVEGYL (CLEMASTINE FUMARATE) [Concomitant]
  3. DAFALGAN (ACETAMINOPHEN) [Concomitant]
  4. CYCLOKAPRON (TRANEXAMIC ACID) [Concomitant]
  5. DEXAMETHASON (DEXAMETHASONE) [Concomitant]
  6. CAPTOPRIL [Concomitant]

REACTIONS (7)
  - CHEST DISCOMFORT [None]
  - CHILLS [None]
  - HEPATIC TRAUMA [None]
  - HEPATOCELLULAR DAMAGE [None]
  - HYPOTENSION [None]
  - PYREXIA [None]
  - TACHYCARDIA [None]
